FAERS Safety Report 22619756 (Version 1)
Quarter: 2023Q2

REPORT INFORMATION
  Report Type: Spontaneous
  Country: US (occurrence: None)
  Receive Date: 20230620
  Receipt Date: 20230620
  Transmission Date: 20230721
  Serious: Yes (Other)
  Sender: FDA-Public Use
  Company Number: 2023A138210

PATIENT
  Age: 24718 Day
  Sex: Female

DRUGS (1)
  1. BYDUREON BCISE [Suspect]
     Active Substance: EXENATIDE
     Route: 058

REACTIONS (9)
  - Retinal detachment [Recovered/Resolved with Sequelae]
  - Cataract [Not Recovered/Not Resolved]
  - Memory impairment [Unknown]
  - Metamorphopsia [Not Recovered/Not Resolved]
  - Retinopexy [Recovered/Resolved with Sequelae]
  - Device malfunction [Unknown]
  - Incorrect dose administered by device [Unknown]
  - Wrong technique in device usage process [Unknown]
  - Device use issue [Unknown]

NARRATIVE: CASE EVENT DATE: 20230611
